FAERS Safety Report 16068897 (Version 1)
Quarter: 2019Q1

REPORT INFORMATION
  Report Type: Spontaneous
  Country: US (occurrence: US)
  Receive Date: 20190313
  Receipt Date: 20190313
  Transmission Date: 20190418
  Serious: No
  Sender: FDA-Public Use
  Company Number: US-SA-2018SA080600

PATIENT
  Age: 70 Year
  Sex: Female

DRUGS (1)
  1. AUBAGIO [Suspect]
     Active Substance: TERIFLUNOMIDE
     Indication: MULTIPLE SCLEROSIS
     Dosage: 7 MG,QD
     Route: 048
     Dates: start: 20171221

REACTIONS (4)
  - Dyspepsia [Unknown]
  - Diarrhoea [Unknown]
  - Headache [Unknown]
  - Alopecia [Unknown]

NARRATIVE: CASE EVENT DATE: 20180314
